FAERS Safety Report 5392223-2 (Version None)
Quarter: 2007Q3

REPORT INFORMATION
  Report Type: 
  Country: None (occurrence: None)
  Receive Date: 20070717
  Receipt Date: 20070717
  Transmission Date: 20080115
  Serious: Yes (Hospitalization, Other)
  Sender: FDA-Public Use
  Company Number: None

PATIENT
  Age: 44 Year
  Sex: Female
  Weight: 86.1834 kg

DRUGS (4)
  1. FLUOXETINE [Suspect]
     Indication: DEPRESSION
     Dosage: 20MG 1  PO
     Route: 048
     Dates: start: 20070618, end: 20070717
  2. DOXEPIN HCL [Suspect]
     Indication: DEPRESSION
     Dosage: 50  1  PO
     Route: 048
     Dates: start: 20070618, end: 20070717
  3. TRAMADOL HCL [Concomitant]
  4. TUSSIN DM [Concomitant]

REACTIONS (9)
  - AMNESIA [None]
  - DISORIENTATION [None]
  - DYSPHASIA [None]
  - FALL [None]
  - INCORRECT DOSE ADMINISTERED [None]
  - LOSS OF CONSCIOUSNESS [None]
  - RESPIRATORY ARREST [None]
  - VISION BLURRED [None]
  - VOMITING [None]
